FAERS Safety Report 9340806 (Version 1)
Quarter: 2013Q2

REPORT INFORMATION
  Report Type: Spontaneous
  Country: CA (occurrence: CA)
  Receive Date: 20130610
  Receipt Date: 20130610
  Transmission Date: 20140414
  Serious: Yes (Hospitalization)
  Sender: FDA-Public Use
  Company Number: CA-009507513-1306CAN004241

PATIENT
  Age: 62 Year
  Sex: Male

DRUGS (3)
  1. VICTRELIS TRIPLE [Suspect]
     Indication: HEPATITIS C
     Dosage: 200 MG, UNK
     Route: 048
     Dates: start: 201301, end: 20130525
  2. VICTRELIS TRIPLE [Suspect]
     Dosage: 200 MG, UNK
     Route: 048
     Dates: start: 201301, end: 201305
  3. VICTRELIS TRIPLE [Suspect]
     Dosage: 0.5 ML, UNK
     Route: 058
     Dates: start: 201301, end: 201305

REACTIONS (4)
  - Abdominal discomfort [Recovered/Resolved]
  - Intestinal dilatation [Recovered/Resolved]
  - Pyrexia [Recovered/Resolved]
  - White blood cell count decreased [Unknown]
